FAERS Safety Report 23121905 (Version 1)
Quarter: 2023Q4

REPORT INFORMATION
  Report Type: Report from Study
  Country: US (occurrence: US)
  Receive Date: 20231030
  Receipt Date: 20231030
  Transmission Date: 20240110
  Serious: Yes (Other)
  Sender: FDA-Public Use
  Company Number: US-ABBVIE-4714394

PATIENT
  Age: 66 Year
  Sex: Female
  Weight: 100.69 kg

DRUGS (5)
  1. SKYRIZI [Suspect]
     Active Substance: RISANKIZUMAB-RZAA
     Indication: Psoriasis
     Route: 058
     Dates: start: 20221019, end: 20221019
  2. SKYRIZI [Suspect]
     Active Substance: RISANKIZUMAB-RZAA
     Dosage: LAST ADMIN DATE: 2023
     Route: 058
     Dates: start: 20230120
  3. SKYRIZI [Suspect]
     Active Substance: RISANKIZUMAB-RZAA
     Dosage: DRUG END DATE AUG 2022
     Route: 058
     Dates: start: 20220820
  4. SKYRIZI [Suspect]
     Active Substance: RISANKIZUMAB-RZAA
     Route: 058
     Dates: start: 20220829, end: 20220829
  5. SKYRIZI [Suspect]
     Active Substance: RISANKIZUMAB-RZAA
     Dosage: FIRST 12 WEEK MAINTENANCE DOSE??FORM STRENGTH: 150 MG/ML
     Route: 058
     Dates: start: 20230317, end: 20230801

REACTIONS (14)
  - Pharyngeal swelling [Unknown]
  - Rash pruritic [Not Recovered/Not Resolved]
  - Adverse food reaction [Unknown]
  - Memory impairment [Not Recovered/Not Resolved]
  - Hypersensitivity [Not Recovered/Not Resolved]
  - Frustration tolerance decreased [Unknown]
  - Dysphagia [Unknown]
  - Urticaria [Recovered/Resolved]
  - Lip swelling [Unknown]
  - Throat irritation [Recovered/Resolved]
  - Renal pain [Unknown]
  - Swollen tongue [Unknown]
  - Injection site erythema [Unknown]
  - Injection site swelling [Unknown]

NARRATIVE: CASE EVENT DATE: 20230201
